FAERS Safety Report 14031993 (Version 1)
Quarter: 2017Q4

REPORT INFORMATION
  Report Type: Spontaneous
  Country: US (occurrence: US)
  Receive Date: 20171003
  Receipt Date: 20171003
  Transmission Date: 20180321
  Serious: Yes (Death)
  Sender: FDA-Public Use
  Company Number: US-ROCHE-1997288

PATIENT
  Age: 56 Year
  Sex: Male
  Weight: 97.61 kg

DRUGS (2)
  1. ALTEPLASE. [Suspect]
     Active Substance: ALTEPLASE
     Indication: ISCHAEMIC STROKE
     Route: 040
     Dates: start: 20170614, end: 20170614
  2. ALTEPLASE. [Suspect]
     Active Substance: ALTEPLASE
     Route: 042
     Dates: start: 20170614, end: 20170614

REACTIONS (2)
  - Subarachnoid haemorrhage [Fatal]
  - Cerebral haemorrhage [Fatal]

NARRATIVE: CASE EVENT DATE: 20170615
